FAERS Safety Report 4288805-1 (Version None)
Quarter: 2004Q1

REPORT INFORMATION
  Report Type: 
  Country: None (occurrence: None)
  Receive Date: 20040203
  Receipt Date: 20030930
  Transmission Date: 20041129
  Serious: Yes (Hospitalization)
  Sender: FDA-Public Use
  Company Number: 200324953BWH

PATIENT
  Age: 37 Year
  Sex: Male
  Weight: 104.3273 kg

DRUGS (1)
  1. AVELOX [Suspect]
     Indication: LYMPHADENOPATHY
     Dosage: 400 MG, QD, ORAL
     Route: 048
     Dates: start: 20030922, end: 20030923

REACTIONS (7)
  - ANXIETY [None]
  - COLD SWEAT [None]
  - CONFUSIONAL STATE [None]
  - CONVULSION [None]
  - DYSPHEMIA [None]
  - HYPOAESTHESIA [None]
  - NERVOUSNESS [None]
